FAERS Safety Report 5901755-7 (Version None)
Quarter: 2008Q3

REPORT INFORMATION
  Report Type: 
  Country: None (occurrence: None)
  Receive Date: 20080925
  Receipt Date: 20080910
  Transmission Date: 20090109
  Serious: Yes (Hospitalization, Other)
  Sender: FDA-Public Use
  Company Number: ENT 2008-0117

PATIENT
  Age: 70 Year
  Sex: Female

DRUGS (2)
  1. COMTAN [Suspect]
     Indication: PARKINSON'S DISEASE
     Dosage: ORAL
     Route: 048
     Dates: start: 20070101, end: 20080401
  2. LEVODOPA [Concomitant]

REACTIONS (4)
  - CONDITION AGGRAVATED [None]
  - CONSTIPATION [None]
  - FALL [None]
  - FRACTURE [None]
